FAERS Safety Report 9190868 (Version 1)
Quarter: 2013Q1

REPORT INFORMATION
  Report Type: Report from Study
  Country: CN (occurrence: CN)
  Receive Date: 20130326
  Receipt Date: 20130326
  Transmission Date: 20140127
  Serious: Yes (Hospitalization, Other)
  Sender: FDA-Public Use
  Company Number: CN-ROCHE-1206813

PATIENT
  Age: 50 Year
  Sex: Female

DRUGS (4)
  1. PEGASYS [Suspect]
     Indication: HEPATITIS C
     Route: 058
     Dates: start: 201203, end: 201205
  2. PEGASYS [Suspect]
     Route: 058
     Dates: start: 201205, end: 201206
  3. PEGASYS [Suspect]
     Route: 058
     Dates: start: 201207, end: 201303
  4. RIBAVIRIN [Concomitant]
     Indication: HEPATITIS C
     Route: 048
     Dates: start: 201301, end: 201303

REACTIONS (3)
  - Renal haemorrhage [Unknown]
  - White blood cell count decreased [Unknown]
  - Platelet count decreased [Unknown]
